FAERS Safety Report 7517257-0 (Version None)
Quarter: 2011Q2

REPORT INFORMATION
  Report Type: 
  Country: None (occurrence: None)
  Receive Date: 20110601
  Receipt Date: 20110527
  Transmission Date: 20111010
  Serious: No
  Sender: FDA-Public Use
  Company Number: US-TEVA-283884USA

PATIENT
  Sex: Female
  Weight: 69.916 kg

DRUGS (6)
  1. COPAXONE [Suspect]
     Indication: MULTIPLE SCLEROSIS
     Route: 058
     Dates: start: 20091111, end: 20091111
  2. DULOXETINE HYDROCHLORIDE [Concomitant]
  3. GABAPENTIN [Concomitant]
  4. BACLOFEN [Concomitant]
  5. TOLTERODINE TARTRATE [Concomitant]
  6. MODAFINIL [Concomitant]

REACTIONS (1)
  - IMMEDIATE POST-INJECTION REACTION [None]
